FAERS Safety Report 4466007-3 (Version None)
Quarter: 2004Q3

REPORT INFORMATION
  Report Type: 
  Country: None (occurrence: None)
  Receive Date: 20040930
  Receipt Date: 20040916
  Transmission Date: 20050211
  Serious: Yes (Other)
  Sender: FDA-Public Use
  Company Number: B0346175A

PATIENT
  Age: 64 Year
  Sex: Male

DRUGS (3)
  1. RETROVIR [Suspect]
  2. INTERFERON ALFA-NL (INTERFERON ALFA-NL) [Suspect]
  3. FLUDARABINE PHOSPHATE [Concomitant]

REACTIONS (2)
  - DRUG INTOLERANCE [None]
  - PANCYTOPENIA [None]
